FAERS Safety Report 4698568-3 (Version None)
Quarter: 2005Q2

REPORT INFORMATION
  Report Type: 
  Country: None (occurrence: None)
  Receive Date: 20050622
  Receipt Date: 20050613
  Transmission Date: 20051028
  Serious: Yes (Other)
  Sender: FDA-Public Use
  Company Number: 215291

PATIENT
  Age: 59 Year

DRUGS (6)
  1. XOLAIR [Suspect]
     Indication: ASTHMA
     Dosage: 375 MG, Q2W, SUBCUTANEOUS
     Route: 058
     Dates: start: 20031101
  2. SINGULAIR [Concomitant]
  3. ADVAIR (FLUTICASONE PROPIONATE, SALMETEROL XINAFOATE) [Concomitant]
  4. NEBULIZER TREATMENT (UNK INGREDIENTS) (RESPIRATORY TREATMENTS AND DEVI [Concomitant]
  5. FLONASE [Concomitant]
  6. STEROIDS (UNK INGREDIENTS) (STEROID NOS) [Concomitant]

REACTIONS (1)
  - PSORIASIS [None]
